FAERS Safety Report 14664975 (Version 1)
Quarter: 2018Q1

REPORT INFORMATION
  Report Type: Spontaneous
  Country: US (occurrence: US)
  Receive Date: 20180320
  Receipt Date: 20180320
  Transmission Date: 20180509
  Serious: Yes (Hospitalization)
  Sender: FDA-Public Use
  Company Number: None

PATIENT
  Age: 42 Year
  Sex: Female
  Weight: 118 kg

DRUGS (1)
  1. JARDIANCE [Suspect]
     Active Substance: EMPAGLIFLOZIN
     Indication: DIABETES MELLITUS
     Route: 048
     Dates: start: 20170821, end: 20171016

REACTIONS (5)
  - Blood triglycerides increased [None]
  - Abdominal pain [None]
  - Anion gap increased [None]
  - Hyperglycaemia [None]
  - Treatment noncompliance [None]

NARRATIVE: CASE EVENT DATE: 20171017
